FAERS Safety Report 15074684 (Version 1)
Quarter: 2018Q2

REPORT INFORMATION
  Report Type: Report from Study
  Country: US (occurrence: US)
  Receive Date: 20180627
  Receipt Date: 20180627
  Transmission Date: 20180711
  Serious: No
  Sender: FDA-Public Use
  Company Number: US-SAOL THERAPEUTICS-2017SAO01166

PATIENT
  Sex: Female

DRUGS (36)
  1. DILAUDID [Suspect]
     Active Substance: HYDROMORPHONE HYDROCHLORIDE
     Dosage: 1.602 MG, \DAY
     Route: 037
     Dates: start: 20110927, end: 20111201
  2. BUPIVACAINE. [Suspect]
     Active Substance: BUPIVACAINE
     Dosage: 17.192 MG, \DAY
     Route: 037
     Dates: start: 20150820
  3. CLONIDINE. [Suspect]
     Active Substance: CLONIDINE
     Dosage: 73.32 ?G, \DAY
     Route: 037
     Dates: start: 20110927, end: 20111201
  4. CLONIDINE. [Suspect]
     Active Substance: CLONIDINE
     Dosage: 59.96 ?G, \DAY
     Route: 037
     Dates: start: 20111201
  5. CLONIDINE. [Suspect]
     Active Substance: CLONIDINE
     Dosage: 131.21 ?G, \DAY
     Route: 037
     Dates: start: 20150625, end: 20150820
  6. COMPOUNDED BACLOFEN [Suspect]
     Active Substance: BACLOFEN
     Dosage: 250.03 ?G, \DAY
     Route: 037
     Dates: start: 20150625, end: 20150820
  7. BUPIVACAINE. [Suspect]
     Active Substance: BUPIVACAINE
     Dosage: 19.682 MG, \DAY
     Route: 037
     Dates: start: 20150625, end: 20150820
  8. CLONIDINE. [Suspect]
     Active Substance: CLONIDINE
     Dosage: 83.27 ?G, \DAY
     Route: 037
     Dates: start: 20150820
  9. DROPERIDOL. [Suspect]
     Active Substance: DROPERIDOL
     Dosage: 114.61 ?G, \DAY
     Route: 037
     Dates: start: 20150820
  10. COMPOUNDED BACLOFEN [Suspect]
     Active Substance: BACLOFEN
     Dosage: 267.04 ?G, \DAY
     Route: 037
     Dates: start: 20110927, end: 20111201
  11. BUPIVACAINE. [Suspect]
     Active Substance: BUPIVACAINE
     Dosage: 12.491 MG, \DAY
     Route: 037
     Dates: start: 20150820
  12. CLONIDINE. [Suspect]
     Active Substance: CLONIDINE
     Dosage: 106.81 ?G, \DAY
     Route: 037
     Dates: start: 20110927, end: 20111201
  13. COMPOUNDED BACLOFEN [Suspect]
     Active Substance: BACLOFEN
     Dosage: 183.30 ?G, \DAY
     Route: 037
     Dates: start: 20110927, end: 20111201
  14. COMPOUNDED BACLOFEN [Suspect]
     Active Substance: BACLOFEN
     Dosage: 196.74 ?G, \DAY
     Route: 037
     Dates: start: 20111201
  15. DILAUDID [Suspect]
     Active Substance: HYDROMORPHONE HYDROCHLORIDE
     Dosage: 1.5002 MG, \DAY
     Route: 037
     Dates: start: 20150625, end: 20150820
  16. BUPIVACAINE. [Suspect]
     Active Substance: BUPIVACAINE
     Dosage: 8.8994 MG, \DAY
     Route: 037
     Dates: start: 20111201
  17. DROPERIDOL. [Suspect]
     Active Substance: DROPERIDOL
     Dosage: 131.21 ?G, \DAY
     Route: 037
     Dates: start: 20150625, end: 20150820
  18. COMPOUNDED BACLOFEN [Suspect]
     Active Substance: BACLOFEN
     Dosage: 286.53 ?G, \DAY
     Route: 037
     Dates: start: 20150820
  19. DILAUDID [Suspect]
     Active Substance: HYDROMORPHONE HYDROCHLORIDE
     Dosage: 0.8994 MG, \DAY
     Route: 037
     Dates: start: 20111201
  20. CLONIDINE. [Suspect]
     Active Substance: CLONIDINE
     Dosage: 100.01 ?G, \DAY
     Route: 037
     Dates: start: 20150625, end: 20150820
  21. COMPOUNDED BACLOFEN [Suspect]
     Active Substance: BACLOFEN
     Dosage: 328.03 ?G, \DAY
     Route: 037
     Dates: start: 20150625, end: 20150820
  22. DILAUDID [Suspect]
     Active Substance: HYDROMORPHONE HYDROCHLORIDE
     Dosage: 1.249 MG, \DAY
     Route: 037
     Dates: start: 20150820
  23. BUPIVACAINE. [Suspect]
     Active Substance: BUPIVACAINE
     Dosage: 16.022 MG, \DAY
     Route: 037
     Dates: start: 20110927, end: 20111201
  24. BUPIVACAINE. [Suspect]
     Active Substance: BUPIVACAINE
     Dosage: 11.804 MG, \DAY
     Route: 037
     Dates: start: 20111201
  25. BUPIVACAINE. [Suspect]
     Active Substance: BUPIVACAINE
     Dosage: 15.002 MG, \DAY
     Route: 037
     Dates: start: 20150625, end: 20150820
  26. DROPERIDOL. [Suspect]
     Active Substance: DROPERIDOL
     Dosage: 83.27 ?G, \DAY
     Route: 037
     Dates: start: 20150820
  27. COMPOUNDED BACLOFEN [Suspect]
     Active Substance: BACLOFEN
     Dosage: 149.89 ?G, \DAY
     Route: 037
     Dates: start: 20111201
  28. DILAUDID [Suspect]
     Active Substance: HYDROMORPHONE HYDROCHLORIDE
     Dosage: 1.0998 MG, \DAY
     Route: 037
     Dates: start: 20110927, end: 20111201
  29. DILAUDID [Suspect]
     Active Substance: HYDROMORPHONE HYDROCHLORIDE
     Dosage: 1.719 MG, \DAY
     Route: 037
     Dates: start: 20150820
  30. CLONIDINE. [Suspect]
     Active Substance: CLONIDINE
     Dosage: 114.61 ?G, \DAY
     Route: 037
     Dates: start: 20150820
  31. COMPOUNDED BACLOFEN [Suspect]
     Active Substance: BACLOFEN
     Dosage: 208.18 ?G, \DAY
     Route: 037
     Dates: start: 20150820
  32. DILAUDID [Suspect]
     Active Substance: HYDROMORPHONE HYDROCHLORIDE
     Dosage: 1.180 MG, \DAY
     Route: 037
     Dates: start: 20111201
  33. DILAUDID [Suspect]
     Active Substance: HYDROMORPHONE HYDROCHLORIDE
     Dosage: 1.968 MG, \DAY
     Route: 037
     Dates: start: 20150625, end: 20150820
  34. BUPIVACAINE. [Suspect]
     Active Substance: BUPIVACAINE
     Dosage: 10.998 MG, \DAY
     Route: 037
     Dates: start: 20110927, end: 20111201
  35. CLONIDINE. [Suspect]
     Active Substance: CLONIDINE
     Dosage: 78.69 ?G, \DAY
     Route: 037
     Dates: start: 20111201
  36. DROPERIDOL. [Suspect]
     Active Substance: DROPERIDOL
     Dosage: 100.01 ?G, \DAY
     Route: 037
     Dates: start: 20150625, end: 20150820

REACTIONS (5)
  - Tremor [Recovered/Resolved]
  - Paraesthesia [Recovered/Resolved]
  - Mental status changes [Recovered/Resolved]
  - Sedation [Recovered/Resolved]
  - Hypoaesthesia [Recovered/Resolved]

NARRATIVE: CASE EVENT DATE: 20111201
